FAERS Safety Report 13183433 (Version 1)
Quarter: 2017Q1

REPORT INFORMATION
  Report Type: Report from Study
  Country: IT (occurrence: IT)
  Receive Date: 20170203
  Receipt Date: 20170203
  Transmission Date: 20170428
  Serious: Yes (Death, Life-Threatening, Other)
  Sender: FDA-Public Use
  Company Number: IT-BRISTOL-MYERS SQUIBB COMPANY-BMS-2017-006640

PATIENT
  Age: 75 Year
  Sex: Female

DRUGS (1)
  1. NIVOLUMAB [Suspect]
     Active Substance: NIVOLUMAB
     Indication: ADENOCARCINOMA
     Dosage: 3 MG/KG, Q2WK
     Route: 042
     Dates: start: 20160414, end: 20161227

REACTIONS (5)
  - Interstitial lung disease [Fatal]
  - Respiratory acidosis [Fatal]
  - Renal failure [Unknown]
  - Hepatic failure [Unknown]
  - Congestive cardiomyopathy [Fatal]

NARRATIVE: CASE EVENT DATE: 20170121
